FAERS Safety Report 17213947 (Version 1)
Quarter: 2019Q4

REPORT INFORMATION
  Report Type: Spontaneous
  Country: US (occurrence: US)
  Receive Date: 20191230
  Receipt Date: 20191230
  Transmission Date: 20200122
  Serious: No
  Sender: FDA-Public Use
  Company Number: US-PFIZER INC-2019165349

PATIENT
  Age: 44 Year
  Sex: Male
  Weight: 111.8 kg

DRUGS (1)
  1. RAPAMUNE [Suspect]
     Active Substance: SIROLIMUS
     Dosage: 0.5 MG, 2X/DAY (0.5 ML, 2X/DAY)
     Route: 048
     Dates: start: 20190130

REACTIONS (3)
  - Lymphoedema [Unknown]
  - Off label use [Unknown]
  - Product use issue [Unknown]

NARRATIVE: CASE EVENT DATE: 20190130
